FAERS Safety Report 4833089-6 (Version None)
Quarter: 2005Q4

REPORT INFORMATION
  Report Type: 
  Country: None (occurrence: None)
  Receive Date: 20051117
  Receipt Date: 20051104
  Transmission Date: 20060501
  Serious: Yes (Other)
  Sender: FDA-Public Use
  Company Number: 2005155188

PATIENT
  Age: 32 Year
  Sex: Male

DRUGS (5)
  1. TESTOSTERONE CYPIONATE [Suspect]
     Indication: OFF LABEL USE
     Dosage: 300  MG, WEEKLY
  2. SOMATROPIN (SOMATROPIN) [Suspect]
     Indication: OFF LABEL USE
  3. OXANDROLONE [Suspect]
     Indication: OFF LABEL USE
  4. METHANDROSTENOLONE [Suspect]
     Indication: OFF LABEL USE
     Dosage: 20 MG DAILY
  5. METENOLONE (METENOLONE) [Suspect]
     Indication: OFF LABEL USE
     Dosage: 1 INJECTION, WEEKLY

REACTIONS (20)
  - ABNORMAL BEHAVIOUR [None]
  - AGGRESSION [None]
  - DELUSION OF GRANDEUR [None]
  - FEELING GUILTY [None]
  - HALLUCINATION, AUDITORY [None]
  - HALLUCINATION, TACTILE [None]
  - HUMAN BITE [None]
  - IDEAS OF REFERENCE [None]
  - IMPRISONMENT [None]
  - IMPULSIVE BEHAVIOUR [None]
  - IRRITABILITY [None]
  - LEGAL PROBLEM [None]
  - MAJOR DEPRESSION [None]
  - MANIA [None]
  - MOOD DISORDER DUE TO A GENERAL MEDICAL CONDITION [None]
  - OBSESSIVE THOUGHTS [None]
  - PARANOIA [None]
  - PHYSICAL ASSAULT [None]
  - SELF ESTEEM INFLATED [None]
  - SUICIDAL IDEATION [None]
